FAERS Safety Report 4519062-6 (Version None)
Quarter: 2004Q4

REPORT INFORMATION
  Report Type: 
  Country: None (occurrence: None)
  Receive Date: 20041201
  Receipt Date: 20041117
  Transmission Date: 20050328
  Serious: Yes (Life-Threatening, Hospitalization)
  Sender: FDA-Public Use
  Company Number: 200410565BYL

PATIENT
  Age: 78 Year
  Sex: Female
  Weight: 56.5 kg

DRUGS (8)
  1. GLUCOBAY [Suspect]
     Indication: DIABETES MELLITUS
     Dosage: 100 MG, TID, ORAL
     Route: 048
     Dates: start: 20040623, end: 20041021
  2. GLYBURIDE [Concomitant]
  3. BAYASPIRIN [Concomitant]
  4. INHIBACE [Concomitant]
  5. CARDENALIN [Concomitant]
  6. GASTER D [Concomitant]
  7. SIGMART [Concomitant]
  8. DILTIAZEM HYDROCHLORIDE [Concomitant]

REACTIONS (4)
  - DIABETES MELLITUS INADEQUATE CONTROL [None]
  - ENTEROCOLITIS [None]
  - PERITONITIS [None]
  - PNEUMATOSIS CYSTOIDES INTESTINALIS [None]
